FAERS Safety Report 8712624 (Version 2)
Quarter: 2013Q2

REPORT INFORMATION
  Report Type: Spontaneous
  Country: US (occurrence: US)
  Receive Date: 20120808
  Receipt Date: 20130621
  Transmission Date: 20140414
  Serious: Yes (Hospitalization)
  Sender: FDA-Public Use
  Company Number: US-BAYER-2012-077766

PATIENT
  Age: 24 Year
  Sex: Female
  Weight: 49.89 kg

DRUGS (5)
  1. YAZ [Suspect]
     Indication: CONTRACEPTION
     Dosage: UNK
     Dates: start: 200708, end: 200906
  2. YAZ [Suspect]
     Indication: ACNE
     Dosage: UNK
     Dates: start: 201009, end: 201101
  3. GIANVI [Suspect]
     Indication: ACNE
     Dosage: UNK
     Dates: start: 201101, end: 201112
  4. SPIRONOLACTONE [Concomitant]
     Dosage: UNK
     Dates: start: 200909
  5. NSAID^S [Concomitant]

REACTIONS (3)
  - Gallbladder disorder [None]
  - Cholecystitis [None]
  - Mental disorder [None]
